FAERS Safety Report 13253102 (Version 2)
Quarter: 2017Q2

REPORT INFORMATION
  Report Type: Spontaneous
  Country: GB (occurrence: GB)
  Receive Date: 20170220
  Receipt Date: 20170522
  Transmission Date: 20170830
  Serious: Yes (Hospitalization)
  Sender: FDA-Public Use
  Company Number: GB-BRACCO-001183

PATIENT
  Age: 71 Year
  Sex: Female
  Weight: 61 kg

DRUGS (2)
  1. IOPAMIDOL [Suspect]
     Active Substance: IOPAMIDOL
     Indication: ECHOCARDIOGRAM
     Route: 042
     Dates: start: 20170130, end: 20170130
  2. METOPROLOL. [Suspect]
     Active Substance: METOPROLOL
     Indication: COMPUTERISED TOMOGRAM
     Route: 042
     Dates: start: 20170130, end: 20170130

REACTIONS (4)
  - Syncope [Recovering/Resolving]
  - Flushing [Recovering/Resolving]
  - Chest discomfort [Recovering/Resolving]
  - Mass [Recovering/Resolving]

NARRATIVE: CASE EVENT DATE: 20170130
